FAERS Safety Report 15005410 (Version 2)
Quarter: 2018Q3

REPORT INFORMATION
  Report Type: Other
  Country: CA (occurrence: CA)
  Receive Date: 20180613
  Receipt Date: 20180713
  Transmission Date: 20181010
  Serious: Yes (Other)
  Sender: FDA-Public Use
  Company Number: CA-APOTEX-2018AP015333

PATIENT
  Age: 39 Year
  Sex: Female

DRUGS (1)
  1. APO?OLANZAPINE [Suspect]
     Active Substance: OLANZAPINE
     Indication: SCHIZOPHRENIA
     Dosage: 5 MG, QD
     Route: 048

REACTIONS (5)
  - Product substitution issue [Recovered/Resolved]
  - Psychotic disorder [Recovered/Resolved]
  - Insomnia [Recovered/Resolved]
  - Mania [Recovered/Resolved]
  - Drug ineffective [Recovered/Resolved]
